FAERS Safety Report 22037012 (Version 1)
Quarter: 2023Q1

REPORT INFORMATION
  Report Type: Spontaneous
  Country: US (occurrence: US)
  Receive Date: 20230226
  Receipt Date: 20230226
  Transmission Date: 20230418
  Serious: Yes (Other)
  Sender: FDA-Public Use
  Company Number: US-JNJFOC-20230241673

PATIENT
  Sex: Male

DRUGS (2)
  1. ERLEADA [Suspect]
     Active Substance: APALUTAMIDE
     Indication: Product used for unknown indication
     Route: 048
     Dates: start: 2020, end: 20230213
  2. SIPULEUCEL-T [Suspect]
     Active Substance: SIPULEUCEL-T
     Indication: Prostate cancer metastatic

REACTIONS (1)
  - Vancomycin infusion reaction [Not Recovered/Not Resolved]

NARRATIVE: CASE EVENT DATE: 20230201
